FAERS Safety Report 5971035-2 (Version None)
Quarter: 2008Q4

REPORT INFORMATION
  Report Type: 
  Country: None (occurrence: None)
  Receive Date: 20081128
  Receipt Date: 20081119
  Transmission Date: 20090506
  Serious: Yes (Other)
  Sender: FDA-Public Use
  Company Number: PHEH2008US10390

PATIENT
  Age: 65 Year
  Sex: Female

DRUGS (1)
  1. RECLAST [Suspect]
     Dosage: UNK
     Dates: start: 20080101

REACTIONS (4)
  - ANXIETY [None]
  - DEHYDRATION [None]
  - MUSCULAR WEAKNESS [None]
  - TEARFULNESS [None]
